FAERS Safety Report 6324470-7 (Version None)
Quarter: 2009Q3

REPORT INFORMATION
  Report Type: 
  Country: None (occurrence: None)
  Receive Date: 20090824
  Receipt Date: 20090429
  Transmission Date: 20100115
  Serious: No
  Sender: FDA-Public Use
  Company Number: US-ABBOTT-09P-163-0570808-00

PATIENT
  Sex: Female
  Weight: 85.352 kg

DRUGS (5)
  1. NIASPAN [Suspect]
     Indication: BLOOD CHOLESTEROL INCREASED
     Dates: start: 20090321
  2. ZYRTEC-D 12 HOUR [Concomitant]
     Indication: SEASONAL ALLERGY
  3. FLAGYL [Concomitant]
     Indication: DRUG USE FOR UNKNOWN INDICATION
  4. ASPIRIN [Concomitant]
     Indication: DRUG USE FOR UNKNOWN INDICATION
  5. METROGEL [Concomitant]
     Indication: ROSACEA
     Route: 061

REACTIONS (2)
  - FLUSHING [None]
  - LIP DISORDER [None]
